FAERS Safety Report 9254801 (Version 1)
Quarter: 2013Q2

REPORT INFORMATION
  Report Type: Spontaneous
  Country: US (occurrence: US)
  Receive Date: 20130425
  Receipt Date: 20130425
  Transmission Date: 20140414
  Serious: Yes (Other)
  Sender: FDA-Public Use
  Company Number: 2013SP003684

PATIENT
  Sex: Female

DRUGS (1)
  1. HALOPERIDOL DECANOATE [Suspect]
     Indication: PRODUCT USED FOR UNKNOWN INDICATION
     Dates: start: 2012, end: 2012

REACTIONS (6)
  - Memory impairment [Unknown]
  - Hearing impaired [Unknown]
  - Visual impairment [Unknown]
  - Deformity [Unknown]
  - Gait disturbance [Unknown]
  - Dental discomfort [Unknown]
